FAERS Safety Report 7222564-5 (Version None)
Quarter: 2011Q1

REPORT INFORMATION
  Report Type: 
  Country: None (occurrence: None)
  Receive Date: 20110112
  Receipt Date: 20110105
  Transmission Date: 20110831
  Serious: Yes (Hospitalization, Other)
  Sender: FDA-Public Use
  Company Number: AU-PFIZER INC-2008063090

PATIENT
  Age: 54 Year
  Sex: Female

DRUGS (3)
  1. ACETYLSALICYLIC ACID [Concomitant]
  2. LIPITOR [Suspect]
     Indication: HYPERCHOLESTEROLAEMIA
     Dosage: 10 MG, 1X/DAY
     Route: 048
     Dates: start: 20050401, end: 20060217
  3. ANTIEMETICS AND ANTINAUSEANTS [Concomitant]

REACTIONS (12)
  - CONVERSION DISORDER [None]
  - AMNESIA [None]
  - MYALGIA [None]
  - HEADACHE [None]
  - LOSS OF CONTROL OF LEGS [None]
  - LOWER RESPIRATORY TRACT INFECTION [None]
  - CONVULSION [None]
  - SPEECH DISORDER [None]
  - FATIGUE [None]
  - NAUSEA [None]
  - TINNITUS [None]
  - ARTHRALGIA [None]
